FAERS Safety Report 6480943-8 (Version None)
Quarter: 2009Q4

REPORT INFORMATION
  Report Type: 
  Country: None (occurrence: None)
  Receive Date: 20091208
  Receipt Date: 20091203
  Transmission Date: 20100525
  Serious: Yes (Death, Hospitalization, Other)
  Sender: FDA-Public Use
  Company Number: PHHY2009GB51941

PATIENT
  Sex: Male

DRUGS (1)
  1. CLOZARIL [Suspect]
     Indication: SCHIZOPHRENIA
     Dosage: 75 MG DAILY
     Dates: start: 20090923

REACTIONS (3)
  - ALTERED STATE OF CONSCIOUSNESS [None]
  - DYSPHAGIA [None]
  - PNEUMONIA [None]
